FAERS Safety Report 14630169 (Version 1)
Quarter: 2018Q1

REPORT INFORMATION
  Report Type: Spontaneous
  Country: US (occurrence: US)
  Receive Date: 20180313
  Receipt Date: 20180313
  Transmission Date: 20180509
  Serious: No
  Sender: FDA-Public Use
  Company Number: US-PFIZER INC-2018102781

PATIENT
  Age: 64 Year
  Sex: Female
  Weight: 60.78 kg

DRUGS (2)
  1. GABAPENTIN. [Suspect]
     Active Substance: GABAPENTIN
     Indication: SLEEP DISORDER
     Dosage: 100MG THREE TIMES DAILY CAPSULES BY MOUTH
     Route: 048
     Dates: start: 201711, end: 201711
  2. GABAPENTIN. [Suspect]
     Active Substance: GABAPENTIN
     Indication: RELAXATION THERAPY

REACTIONS (3)
  - Hypertension [Recovered/Resolved]
  - Insomnia [Recovered/Resolved]
  - Drug ineffective for unapproved indication [Unknown]

NARRATIVE: CASE EVENT DATE: 201711
